FAERS Safety Report 9996615 (Version 4)
Quarter: 2015Q1

REPORT INFORMATION
  Report Type: Spontaneous
  Country: JP (occurrence: JP)
  Receive Date: 20140311
  Receipt Date: 20150224
  Transmission Date: 20150721
  Serious: Yes (Death, Hospitalization, Other)
  Sender: FDA-Public Use
  Company Number: JP-BAYER-2014-034247

PATIENT
  Age: 49 Year
  Sex: Male
  Weight: 58 kg

DRUGS (13)
  1. LOXONIN [Concomitant]
     Active Substance: LOXOPROFEN SODIUM
     Indication: COLON CANCER
     Dosage: DAILY DOSE 60 MG
     Route: 048
     Dates: end: 20140119
  2. EMEND [Concomitant]
     Active Substance: APREPITANT
     Indication: PAIN PROPHYLAXIS
     Dosage: DOSE PER TREATMENT DAY 125MG
     Route: 048
  3. MAGLAX [Concomitant]
     Active Substance: MAGNESIUM OXIDE
     Dosage: DAILY DOSE 7.2 G
     Route: 048
     Dates: end: 20140119
  4. PYDOXAL [Concomitant]
     Active Substance: PYRIDOXAL
     Dosage: DAILY DOSE 30 MG
     Route: 048
     Dates: end: 20140119
  5. STIVARGA [Suspect]
     Active Substance: REGORAFENIB
     Indication: COLON CANCER
     Dosage: 160 MG, QD
     Route: 048
     Dates: start: 20140119, end: 20140119
  6. BLOPRESS [Concomitant]
     Active Substance: CANDESARTAN CILEXETIL
     Dosage: DAILY DOSE 4 MG
     Route: 048
     Dates: end: 20140119
  7. STIVARGA [Suspect]
     Active Substance: REGORAFENIB
     Indication: COLON CANCER
     Dosage: 160 MG, QD
     Route: 048
     Dates: start: 20131220, end: 20131229
  8. MIYA-BM [Concomitant]
     Active Substance: CLOSTRIDIUM BUTYRICUM SPORES STRAIN M-55
     Dosage: DAILY DOSE 3 G
     Route: 048
     Dates: end: 20140119
  9. EMEND [Concomitant]
     Active Substance: APREPITANT
     Indication: PAIN PROPHYLAXIS
     Dosage: DAILY DOSE 80 MG
     Route: 048
     Dates: end: 20140119
  10. URSO [Concomitant]
     Active Substance: URSODIOL
     Dosage: DAILY DOSE 300 MG
     Route: 048
     Dates: end: 20140119
  11. PROMAC [POLAPREZINC] [Concomitant]
     Active Substance: POLAPREZINC
     Dosage: DAILY DOSE 150 MG
     Route: 048
     Dates: end: 20140119
  12. PONSTEL [Concomitant]
     Active Substance: MEFENAMIC ACID
     Indication: COLON CANCER
     Dosage: DAILY DOSE 250 MG
     Route: 048
     Dates: end: 20140119
  13. TAKEPRON [Concomitant]
     Active Substance: LANSOPRAZOLE
     Dosage: DAILY DOSE 15 MG
     Route: 048
     Dates: end: 20140119

REACTIONS (15)
  - Alanine aminotransferase increased [Not Recovered/Not Resolved]
  - Hepatic encephalopathy [Fatal]
  - Hyperammonaemia [Recovered/Resolved]
  - Glomerular filtration rate increased [Recovered/Resolved]
  - Creatinine renal clearance decreased [Not Recovered/Not Resolved]
  - Amylase decreased [Unknown]
  - Blood sodium decreased [Not Recovered/Not Resolved]
  - Gastrointestinal perforation [Recovered/Resolved]
  - Blood bilirubin increased [Not Recovered/Not Resolved]
  - Ammonia decreased [Recovered/Resolved]
  - Blood urea increased [Not Recovered/Not Resolved]
  - Blood urea increased [Recovered/Resolved]
  - Blood calcium decreased [Recovered/Resolved]
  - Altered state of consciousness [Fatal]
  - Abdominal tenderness [Recovered/Resolved]

NARRATIVE: CASE EVENT DATE: 20131220
